FAERS Safety Report 20423514 (Version 1)
Quarter: 2022Q1

REPORT INFORMATION
  Report Type: Spontaneous
  Country: CN (occurrence: CN)
  Receive Date: 20220203
  Receipt Date: 20220203
  Transmission Date: 20220423
  Serious: Yes (Other)
  Sender: FDA-Public Use
  Company Number: CN-009507513-2201CHN008741

PATIENT
  Age: 5 Year
  Sex: Female
  Weight: 18.5 kg

DRUGS (2)
  1. CILASTATIN SODIUM\IMIPENEM [Suspect]
     Active Substance: CILASTATIN SODIUM\IMIPENEM
     Indication: Anti-infective therapy
     Dosage: DOSE: 275G MG, FREQUENCY: EVERY 6 HOURS (Q6H), THE THERAPY COURSE WAS PLANNED FOR 9 DAYS
     Route: 042
     Dates: start: 20211208
  2. OU BO [Concomitant]
     Indication: Antifungal treatment
     Dosage: DOSE: 15 MG, FREQUENCY: ONCE
     Route: 041
     Dates: start: 20211208, end: 20211208

REACTIONS (3)
  - Dizziness [Recovering/Resolving]
  - Asthenia [Recovering/Resolving]
  - Listless [Recovering/Resolving]

NARRATIVE: CASE EVENT DATE: 20211210
